FAERS Safety Report 7496509-7 (Version None)
Quarter: 2011Q2

REPORT INFORMATION
  Report Type: 
  Country: None (occurrence: None)
  Receive Date: 20110523
  Receipt Date: 20110516
  Transmission Date: 20111010
  Serious: Yes (Hospitalization, Other)
  Sender: FDA-Public Use
  Company Number: FR-ROCHE-777813

PATIENT
  Sex: Male

DRUGS (10)
  1. ACETAMINOPHEN [Suspect]
     Indication: PAIN
     Route: 048
     Dates: start: 20100511, end: 20100827
  2. RIFADIN [Suspect]
     Route: 048
     Dates: start: 20100511, end: 20100825
  3. NEXIUM [Concomitant]
     Dates: start: 20100521, end: 20101006
  4. LEVOFLOXACIN [Suspect]
     Dosage: 1 DOSE FORM
     Route: 048
     Dates: start: 20100511, end: 20100825
  5. PYOSTACINE [Suspect]
     Route: 048
     Dates: start: 20100424, end: 20100827
  6. CLONAZEPAM [Suspect]
     Dosage: DRUG NAME REPORTED AS RIVOTRIL 2.5 MG/ML
     Route: 048
     Dates: start: 20100511, end: 20100824
  7. TRAMADOL HCL [Suspect]
     Indication: PAIN
     Dosage: DOSE: 1DOSE FORM
     Route: 048
     Dates: start: 20100511, end: 20100825
  8. LOVENOX [Concomitant]
     Dates: start: 20100511, end: 20100521
  9. OMEPRAZOLE [Concomitant]
     Dates: start: 20100511, end: 20100521
  10. RIFADIN [Concomitant]
     Dosage: DOSE: 600 X 2

REACTIONS (3)
  - PYREXIA [None]
  - RASH MACULO-PAPULAR [None]
  - EOSINOPHILIA [None]
